FAERS Safety Report 7516742-5 (Version None)
Quarter: 2011Q2

REPORT INFORMATION
  Report Type: 
  Country: None (occurrence: None)
  Receive Date: 20110601
  Receipt Date: 20110527
  Transmission Date: 20111010
  Serious: Yes (Hospitalization)
  Sender: FDA-Public Use
  Company Number: US-B.I. PHARMACEUTICALS,INC./RIDGEFIELD-2011-BP-14159BP

PATIENT
  Age: 87 Year
  Sex: Male

DRUGS (2)
  1. PRADAXA [Suspect]
     Dosage: 300 MG
     Dates: start: 20101201, end: 20110301
  2. PRADAXA [Suspect]
     Dosage: 150 MG
     Dates: start: 20110301

REACTIONS (4)
  - HAEMOTHORAX [None]
  - PNEUMOTHORAX [None]
  - GINGIVAL BLEEDING [None]
  - EYE HAEMORRHAGE [None]
